FAERS Safety Report 6108440-X (Version None)
Quarter: 2009Q1

REPORT INFORMATION
  Report Type: 
  Country: None (occurrence: None)
  Receive Date: 20090309
  Receipt Date: 20090227
  Transmission Date: 20090719
  Serious: Yes (Death, Other)
  Sender: FDA-Public Use
  Company Number: JP-PFIZER INC-2009155260

PATIENT

DRUGS (1)
  1. METHYLPREDNISOLONE AND METHYLPREDNISOLONE ACETATE AND METHYLPREDNISOLO [Suspect]
     Indication: VASCULITIS
     Dosage: 0.5 G, 1X/DAY

REACTIONS (3)
  - BENIGN PANCREATIC NEOPLASM [None]
  - MULTI-ORGAN FAILURE [None]
  - PANCREATITIS ACUTE [None]
